FAERS Safety Report 9507442 (Version 1)
Quarter: 2013Q3

REPORT INFORMATION
  Report Type: Spontaneous
  Country: US (occurrence: None)
  Receive Date: 20130906
  Receipt Date: 20130906
  Transmission Date: 20140515
  Serious: Yes (Disabling)
  Sender: FDA-Public Use
  Company Number: None

PATIENT
  Age: 36 Year
  Sex: Female
  Weight: 85.73 kg

DRUGS (4)
  1. MIRENA IUD [Suspect]
  2. LASIX [Concomitant]
  3. TOPAMAX [Concomitant]
  4. PARAGAURD DEVICE [Concomitant]

REACTIONS (7)
  - Blindness [None]
  - Migraine [None]
  - Alopecia [None]
  - Amnesia [None]
  - Weight increased [None]
  - Intracranial pressure increased [None]
  - Multiple allergies [None]
